FAERS Safety Report 9721538 (Version 2)
Quarter: 2014Q1

REPORT INFORMATION
  Report Type: Other
  Country: JP (occurrence: JP)
  Receive Date: 20131130
  Receipt Date: 20140102
  Transmission Date: 20141002
  Serious: Yes (Life-Threatening, Disabling, Other)
  Sender: FDA-Public Use
  Company Number: JP-BRISTOL-MYERS SQUIBB COMPANY-19843960

PATIENT
  Age: 68 Year
  Sex: Female

DRUGS (2)
  1. PARAPLATIN [Suspect]
     Indication: NEUROENDOCRINE CARCINOMA
     Dosage: AUC = 5,ON DAY 1
  2. ETOPOSIDE [Suspect]
     Indication: NEUROENDOCRINE CARCINOMA
     Dosage: 80 MG/M2.ON DAYS 1-3

REACTIONS (6)
  - Respiratory failure [Unknown]
  - Paraneoplastic neurological syndrome [Unknown]
  - Cerebral infarction [Unknown]
  - Tumour lysis syndrome [Unknown]
  - Leukopenia [Unknown]
  - Thrombocytopenia [Unknown]
